FAERS Safety Report 9121271 (Version 4)
Quarter: 2015Q1

REPORT INFORMATION
  Report Type: Spontaneous
  Country: BE (occurrence: BE)
  Receive Date: 20130225
  Receipt Date: 20150213
  Transmission Date: 20150721
  Serious: Yes (Death, Hospitalization, Other)
  Sender: FDA-Public Use
  Company Number: BE-PFIZER INC-2013063848

PATIENT
  Age: 38 Year
  Sex: Female
  Weight: 81 kg

DRUGS (1)
  1. VENLAFAXINE XR [Suspect]
     Active Substance: VENLAFAXINE HYDROCHLORIDE
     Dosage: UNK

REACTIONS (21)
  - Pneumococcal sepsis [Fatal]
  - Serotonin syndrome [Unknown]
  - Coagulopathy [Unknown]
  - Hypoxia [Fatal]
  - Rhabdomyolysis [Unknown]
  - Acute respiratory distress syndrome [Unknown]
  - Left ventricular failure [Unknown]
  - Multi-organ failure [Fatal]
  - Overdose [Fatal]
  - Pneumonia [Unknown]
  - Liver injury [Unknown]
  - Ventricular tachycardia [Unknown]
  - Coma [Unknown]
  - Arrhythmia [Unknown]
  - Acute kidney injury [Unknown]
  - Hypotension [Unknown]
  - Clonus [Unknown]
  - Ejection fraction decreased [Unknown]
  - Cardiogenic shock [Unknown]
  - Atrial fibrillation [Unknown]
  - Troponin I increased [Unknown]
